FAERS Safety Report 19048731 (Version 2)
Quarter: 2021Q2

REPORT INFORMATION
  Report Type: Spontaneous
  Country: US (occurrence: US)
  Receive Date: 20210323
  Receipt Date: 20210402
  Transmission Date: 20210717
  Serious: Yes (Hospitalization)
  Sender: FDA-Public Use
  Company Number: US-FRESENIUS KABI-FK202102876

PATIENT
  Age: 70 Year
  Sex: Male
  Weight: 90.8 kg

DRUGS (3)
  1. FOLINIC ACID [Suspect]
     Active Substance: LEUCOVORIN
     Indication: CHOLANGIOCARCINOMA
     Dosage: Q2W
     Route: 042
     Dates: start: 20210112, end: 20210122
  2. FLUOROURACIL (OTHER MANUFACTURER) [Suspect]
     Active Substance: FLUOROURACIL
     Indication: CHOLANGIOCARCINOMA
     Dosage: 5FU?Q2W
     Route: 042
     Dates: start: 20210112, end: 20210222
  3. IRINOTECAN [Suspect]
     Active Substance: IRINOTECAN
     Indication: CHOLANGIOCARCINOMA
     Dosage: NANOLIPOSOMAL IRINOTECAN?Q2W
     Route: 042
     Dates: start: 20210112, end: 20210222

REACTIONS (3)
  - Ascites [Unknown]
  - Urosepsis [Recovered/Resolved]
  - Escherichia urinary tract infection [Recovered/Resolved]

NARRATIVE: CASE EVENT DATE: 20210301
